FAERS Safety Report 5248049-3 (Version None)
Quarter: 2007Q1

REPORT INFORMATION
  Report Type: 
  Country: None (occurrence: None)
  Receive Date: 20070227
  Receipt Date: 20070216
  Transmission Date: 20070707
  Serious: Yes (Hospitalization)
  Sender: FDA-Public Use
  Company Number: HK-BRISTOL-MYERS SQUIBB COMPANY-13672555

PATIENT
  Age: 77 Year
  Sex: Male
  Weight: 65 kg

DRUGS (7)
  1. PACLITAXEL [Suspect]
     Indication: NON-SMALL CELL LUNG CANCER
     Route: 042
     Dates: start: 20061228, end: 20061228
  2. CARBOPLATIN [Suspect]
     Indication: NON-SMALL CELL LUNG CANCER
     Route: 042
     Dates: start: 20061228, end: 20061228
  3. ASPIRIN [Concomitant]
     Indication: PROPHYLAXIS
     Route: 048
     Dates: start: 20061123
  4. PERINDOPRIL TERT-BUTYLAMINE [Concomitant]
     Indication: HYPERTENSION
     Route: 048
     Dates: start: 20061005
  5. NIFEDIPINE [Concomitant]
     Indication: HYPERTENSION
     Route: 048
     Dates: start: 20061009
  6. COMBIVENT [Concomitant]
     Indication: DYSPNOEA
     Route: 055
     Dates: start: 20061010
  7. DOLOXENE [Concomitant]
     Route: 048
     Dates: start: 20061005

REACTIONS (2)
  - FEBRILE NEUTROPENIA [None]
  - THROMBOPHLEBITIS [None]
